FAERS Safety Report 6021233-7 (Version None)
Quarter: 2008Q4

REPORT INFORMATION
  Report Type: 
  Country: None (occurrence: None)
  Receive Date: 20081222
  Receipt Date: 20081219
  Transmission Date: 20090506
  Serious: Yes (Hospitalization)
  Sender: FDA-Public Use
  Company Number: SP02052

PATIENT
  Age: 83 Year
  Sex: Male

DRUGS (3)
  1. VISICOL [Suspect]
     Indication: COLONOSCOPY
     Dosage: 50 GM, ORAL
     Route: 048
     Dates: start: 20080828, end: 20080828
  2. AMLODIPINE BESYLATE [Concomitant]
  3. CIMETIDINE [Concomitant]

REACTIONS (6)
  - GENERALISED OEDEMA [None]
  - INFREQUENT BOWEL MOVEMENTS [None]
  - METABOLIC ACIDOSIS [None]
  - NEPHROLITHIASIS [None]
  - RENAL FAILURE ACUTE [None]
  - WEIGHT INCREASED [None]
